FAERS Safety Report 7415371-1 (Version None)
Quarter: 2011Q2

REPORT INFORMATION
  Report Type: 
  Country: None (occurrence: None)
  Receive Date: 20110414
  Receipt Date: 20110407
  Transmission Date: 20111010
  Serious: Yes (Hospitalization)
  Sender: FDA-Public Use
  Company Number: B0695507A

PATIENT
  Sex: Female
  Weight: 40 kg

DRUGS (14)
  1. MEDROL [Concomitant]
     Dosage: 20MG PER DAY
     Route: 048
     Dates: start: 20110111
  2. MOHRUS TAPE [Concomitant]
     Route: 062
     Dates: start: 20110111
  3. URSO 250 [Concomitant]
     Dosage: 600MG PER DAY
     Route: 048
     Dates: start: 20110111
  4. ARASENA-A [Concomitant]
     Route: 061
     Dates: start: 20110114
  5. DIFLUCAN [Concomitant]
     Dosage: 100MG PER DAY
     Route: 048
     Dates: start: 20110111
  6. MUCOSTA [Concomitant]
     Dosage: 300MG PER DAY
     Route: 048
     Dates: start: 20110111
  7. LIPITOR [Concomitant]
     Dosage: 5MG PER DAY
     Route: 048
     Dates: start: 20110111
  8. ZETIA [Concomitant]
     Dosage: 10MG PER DAY
     Route: 048
     Dates: start: 20110111
  9. BAKTAR [Concomitant]
     Route: 048
     Dates: start: 20110111
  10. RHEUMATREX [Concomitant]
     Route: 048
     Dates: start: 20110111
  11. VALTREX [Suspect]
     Indication: HERPES ZOSTER
     Dosage: 3000MG PER DAY
     Route: 048
     Dates: start: 20110114, end: 20110120
  12. CALFINA [Concomitant]
     Dosage: .5MCG PER DAY
     Route: 048
     Dates: start: 20110111
  13. GASTER D [Concomitant]
     Dosage: 20MG PER DAY
     Route: 048
     Dates: start: 20110111
  14. FOSAMAC [Concomitant]
     Route: 048
     Dates: start: 20110111

REACTIONS (9)
  - BLOOD CREATININE INCREASED [None]
  - ASTHENIA [None]
  - BLOOD UREA INCREASED [None]
  - BLOOD URIC ACID INCREASED [None]
  - PLATELET COUNT DECREASED [None]
  - RENAL FAILURE ACUTE [None]
  - GLOMERULAR FILTRATION RATE DECREASED [None]
  - URINE OUTPUT DECREASED [None]
  - C-REACTIVE PROTEIN INCREASED [None]
